FAERS Safety Report 8135663-0 (Version None)
Quarter: 2012Q1

REPORT INFORMATION
  Report Type: 
  Country: None (occurrence: None)
  Receive Date: 20120214
  Receipt Date: 20120213
  Transmission Date: 20120608
  Serious: Yes (Death, Hospitalization)
  Sender: FDA-Public Use
  Company Number: PHFR2011GB007057

PATIENT
  Sex: Female

DRUGS (14)
  1. TOLTERODINE TARTRATE [Concomitant]
     Dosage: 2 MG, BID
  2. HYOSCINE [Concomitant]
     Indication: SALIVARY HYPERSECRETION
     Dosage: 300 MG, DAILY
  3. SENNA [Concomitant]
     Indication: CONSTIPATION
     Dosage: 7.5 MG, BID
  4. VALPROIC ACID [Concomitant]
     Indication: SCHIZOPHRENIA
     Dosage: 1600 MG, DAILY
     Route: 048
  5. NAPROXEN [Concomitant]
     Indication: BACK PAIN
     Dosage: 300 MG, BID
  6. CLOZARIL [Suspect]
     Indication: SCHIZOPHRENIA
     Dosage: 375 MG, DAILY
     Route: 048
     Dates: start: 20091021
  7. LITHIUM CARBONATE [Concomitant]
     Indication: SCHIZOPHRENIA
     Dosage: 800 MG, DAILY
     Route: 048
  8. CITALOPRAM HYDROBROMIDE [Concomitant]
     Indication: SCHIZOPHRENIA
     Dosage: 20 MG, DAILY
     Route: 048
  9. CODEINE SULFATE [Concomitant]
     Indication: BACK PAIN
     Dosage: 30 MG, QOD
  10. ALBUTEROL SULFATE AUTOHALER [Concomitant]
  11. TEMAZEPAM [Concomitant]
     Dosage: 10 MG, DAILY
  12. DIPROBASE [Concomitant]
  13. LANSOPRAZOLE [Concomitant]
     Dosage: 30 MG, DAILY
  14. ARIPIPRAZOLE [Concomitant]
     Indication: SCHIZOPHRENIA
     Dosage: 10 MG, DAILY
     Route: 048

REACTIONS (6)
  - SCHIZOPHRENIA [None]
  - CHRONIC OBSTRUCTIVE PULMONARY DISEASE [None]
  - RENAL FAILURE CHRONIC [None]
  - HAEMOGLOBIN DECREASED [None]
  - CIRCULATORY COLLAPSE [None]
  - CONDITION AGGRAVATED [None]
